FAERS Safety Report 9033097 (Version 1)
Quarter: 2013Q1

REPORT INFORMATION
  Report Type: Spontaneous
  Country: FR (occurrence: FR)
  Receive Date: 20130128
  Receipt Date: 20130128
  Transmission Date: 20140127
  Serious: Yes (Hospitalization, Other)
  Sender: FDA-Public Use
  Company Number: FR-PFIZER INC-2013027218

PATIENT
  Age: 80 Year
  Sex: Female

DRUGS (9)
  1. TAHOR [Suspect]
     Indication: DYSLIPIDAEMIA
     Dosage: 1 DF, ONCE DAILY
     Route: 048
  2. COUMADINE [Interacting]
     Indication: PROPHYLAXIS
     Dosage: 4 MG ON DAY 1 AND 2 MG ON DAY 2
     Route: 048
  3. KARDEGIC [Interacting]
     Indication: PROPHYLAXIS
     Dosage: 1 DF, ONCE DAILY
     Route: 048
     Dates: end: 20121008
  4. DAFALGAN [Interacting]
     Indication: PAIN
     Dosage: 4 DF, PER DAY
     Route: 048
  5. COVERSYL [Concomitant]
     Dosage: UNK
  6. LOPRESSOR [Concomitant]
     Dosage: UNK
  7. FIV-ASA [Concomitant]
     Dosage: UNK
  8. ESOMEPRAZOLE [Concomitant]
     Dosage: UNK
  9. NATISPRAY [Concomitant]
     Dosage: UNK

REACTIONS (19)
  - Drug interaction [Recovered/Resolved]
  - Epistaxis [Recovered/Resolved]
  - Cholestasis [Unknown]
  - Cholecystitis [Unknown]
  - Fall [Unknown]
  - Face injury [Unknown]
  - Epistaxis [Recovered/Resolved]
  - Gastroenteritis [Unknown]
  - Abdominal pain upper [Unknown]
  - Blood bilirubin increased [Unknown]
  - Malaise [Unknown]
  - Vomiting [Unknown]
  - Platelet count increased [Unknown]
  - C-reactive protein increased [Unknown]
  - Cell death [Unknown]
  - Aspartate aminotransferase increased [Recovered/Resolved]
  - Alanine aminotransferase increased [Recovered/Resolved]
  - Vitamin D deficiency [Unknown]
  - Gamma-glutamyltransferase increased [Unknown]
